FAERS Safety Report 18336554 (Version 3)
Quarter: 2020Q4

REPORT INFORMATION
  Report Type: Spontaneous
  Country: PH (occurrence: PH)
  Receive Date: 20201001
  Receipt Date: 20201204
  Transmission Date: 20210113
  Serious: Yes (Death, Hospitalization, Other)
  Sender: FDA-Public Use
  Company Number: PH-SA-2020SA268987

PATIENT

DRUGS (15)
  1. BESPRIN [Concomitant]
     Active Substance: ASPIRIN
     Dosage: 1 DF, QD(1 TABLET AFTER BREAKFAST)
     Route: 065
  2. ENTRESTO [Concomitant]
     Active Substance: SACUBITRIL\VALSARTAN
     Dosage: 150 MG, QD
  3. ITORVAZ [Concomitant]
     Active Substance: ATORVASTATIN CALCIUM
     Dosage: 0.5 DF, QD (AFTER DINNER)
     Route: 065
  4. ISORDIL [Concomitant]
     Active Substance: ISOSORBIDE DINITRATE
     Indication: CHEST PAIN
     Dosage: 1 DF, PRN
     Route: 060
  5. GLIMESYN [Concomitant]
     Active Substance: GLIMEPIRIDE
     Dosage: 1 DF, QD (HALF TAB BEFORE DINNER)
  6. MOVELAX [Concomitant]
     Active Substance: LACTULOSE
     Dosage: 20 CC AT BEDTIME
     Route: 065
  7. INVOKANA [Concomitant]
     Active Substance: CANAGLIFLOZIN
     Dosage: 1 DF, QD (BEFORE BREAKFAST)
  8. AVELOX [Concomitant]
     Active Substance: MOXIFLOXACIN HYDROCHLORIDE
  9. TOUJEO [Suspect]
     Active Substance: INSULIN GLARGINE
     Dosage: 32 OR 24 UNITS DEPENDS ON MANDATE
     Route: 065
     Dates: start: 20190826
  10. VASOTRATE [Concomitant]
     Active Substance: ISOSORBIDE MONONITRATE
     Dosage: 1 DF, QD (6 AM)
     Route: 065
  11. CORALAN [Concomitant]
     Active Substance: IVABRADINE HYDROCHLORIDE
     Dosage: UNK, BID (1/2 TABLET AFTER BREAKFAST AND 1/2 TABLET AFTER DINNER)
     Route: 065
  12. CLOVIX [ACICLOVIR] [Concomitant]
     Active Substance: ACYCLOVIR
     Dosage: 1 DF, QD (1 TABLET AFTER LUNCH)
     Route: 065
  13. CARDIPRES [Concomitant]
     Active Substance: CARVEDILOL
     Dosage: UNK, BID (1/4 TAB AT 7 AM AND 7 PM)
  14. SPIROFAR [Concomitant]
     Dosage: 1 DF, QD (1 TABLET 12 NOON)
     Route: 065
  15. AMIODARONE [Concomitant]
     Active Substance: AMIODARONE
     Dosage: 0.5 DF, QD (AFTER BREAKFAST)

REACTIONS (13)
  - Renal failure [Fatal]
  - Hepatic failure [Fatal]
  - Haematemesis [Unknown]
  - Product prescribing error [Unknown]
  - Cardiogenic shock [Fatal]
  - Hypotension [Unknown]
  - Somnolence [Unknown]
  - Back pain [Unknown]
  - Malaise [Unknown]
  - Blood glucose increased [Unknown]
  - Dysstasia [Unknown]
  - Hyperhidrosis [Unknown]
  - Abdominal pain upper [Unknown]

NARRATIVE: CASE EVENT DATE: 20190826
